FAERS Safety Report 21715858 (Version 1)
Quarter: 2022Q4

REPORT INFORMATION
  Report Type: Spontaneous
  Country: IN (occurrence: IN)
  Receive Date: 20221212
  Receipt Date: 20221212
  Transmission Date: 20230113
  Serious: Yes (Other)
  Sender: FDA-Public Use
  Company Number: IN-BAYER-2022A167429

PATIENT
  Age: 46 Year
  Sex: Female

DRUGS (3)
  1. MOXIFLOXACIN [Suspect]
     Active Substance: MOXIFLOXACIN
     Indication: Leprosy
  2. DAPSONE [Concomitant]
     Active Substance: DAPSONE
     Indication: Leprosy
  3. RIFAMPIN [Concomitant]
     Active Substance: RIFAMPIN
     Indication: Leprosy

REACTIONS (2)
  - Type 2 lepra reaction [None]
  - Off label use [None]
